FAERS Safety Report 25030619 (Version 4)
Quarter: 2025Q1

REPORT INFORMATION
  Report Type: Report from Study
  Country: MX (occurrence: MX)
  Receive Date: 20250303
  Receipt Date: 20250328
  Transmission Date: 20250408
  Serious: Yes (Hospitalization)
  Sender: EMD SERONO INC
  Company Number: MX-Merck Healthcare KGaA-2025010418

PATIENT
  Age: 4 Year
  Sex: Male

DRUGS (3)
  1. SAIZEN [Suspect]
     Active Substance: SOMATROPIN
     Indication: Growth hormone deficiency
     Dates: start: 20221114, end: 20250323
  2. BUDESONIDE\FORMOTEROL FUMARATE DIHYDRATE [Concomitant]
     Active Substance: BUDESONIDE\FORMOTEROL FUMARATE DIHYDRATE
     Indication: Product used for unknown indication
     Dosage: 1 INHALATION IN THE MORNING AND 2 AT NIGHT. THERAPY ONGOING. ONE PUFF EVERY 12 HOURS
     Dates: start: 20241215
  3. ALBUTEROL [Concomitant]
     Active Substance: ALBUTEROL
     Indication: Product used for unknown indication
     Dosage: 1 PUFF EVERY 8 HOURS FOR A WEEK?THERAPY WAS NOT STILL IN USE.
     Dates: start: 20241215, end: 202501

REACTIONS (1)
  - Gastroenteritis viral [Recovered/Resolved]

NARRATIVE: CASE EVENT DATE: 20250203
